FAERS Safety Report 4581183-X (Version None)
Quarter: 2005Q1

REPORT INFORMATION
  Report Type: 
  Country: None (occurrence: None)
  Receive Date: 20050214
  Receipt Date: 20040825
  Transmission Date: 20050727
  Serious: No
  Sender: FDA-Public Use
  Company Number: US-GLAXOSMITHKLINE-A0523482A

PATIENT
  Age: 7 Year
  Sex: Female
  Weight: 21.8 kg

DRUGS (2)
  1. LAMICTAL [Suspect]
     Indication: EPILEPSY
     Dosage: 25MG PER DAY
     Route: 048
     Dates: start: 20041209, end: 20041221
  2. ZONEGRAN [Concomitant]
     Dosage: 100MG AT NIGHT
     Route: 048

REACTIONS (2)
  - HYPERTENSION [None]
  - RASH GENERALISED [None]
